FAERS Safety Report 8130353-2 (Version None)
Quarter: 2012Q1

REPORT INFORMATION
  Report Type: 
  Country: None (occurrence: None)
  Receive Date: 20120210
  Receipt Date: 20120207
  Transmission Date: 20120608
  Serious: Yes (Hospitalization, Other)
  Sender: FDA-Public Use
  Company Number: PHEH2012US003329

PATIENT
  Sex: Female

DRUGS (2)
  1. EXJADE [Suspect]
     Indication: SICKLE CELL ANAEMIA
  2. EXJADE [Suspect]
     Indication: IRON OVERLOAD
     Dosage: 500 MG, QD DISSOLVED IN 75 OUNCES WATER OR JUICES
     Route: 048
     Dates: start: 20081001

REACTIONS (3)
  - INJURY [None]
  - CONVULSION [None]
  - FALL [None]
